FAERS Safety Report 5082422-1 (Version None)
Quarter: 2006Q3

REPORT INFORMATION
  Report Type: 
  Country: None (occurrence: None)
  Receive Date: 20060817
  Receipt Date: 20060810
  Transmission Date: 20061208
  Serious: Yes (Other)
  Sender: FDA-Public Use
  Company Number: AU-GLAXOSMITHKLINE-B0434069A

PATIENT
  Sex: Male

DRUGS (4)
  1. FLIXOTIDE [Suspect]
     Indication: ASTHMA
     Route: 065
  2. FLIXOTIDE [Suspect]
     Indication: CONDITION AGGRAVATED
     Route: 065
  3. SERETIDE [Suspect]
     Indication: BRONCHITIS
     Route: 065
  4. VENTOLIN [Suspect]

REACTIONS (4)
  - ASTHMA [None]
  - BRONCHITIS [None]
  - DRUG INEFFECTIVE [None]
  - DYSPNOEA [None]
